FAERS Safety Report 4899986-0 (Version None)
Quarter: 2006Q1

REPORT INFORMATION
  Report Type: 
  Country: None (occurrence: None)
  Receive Date: 20060201
  Receipt Date: 20060120
  Transmission Date: 20060701
  Serious: Yes (Other)
  Sender: FDA-Public Use
  Company Number: SUS1-2006-00091

PATIENT
  Age: 55 Year
  Sex: Male

DRUGS (1)
  1. PENTASA [Suspect]
     Indication: COLITIS
     Dosage: 1000 MG, 2X/DAY; BID, ORAL
     Route: 048
     Dates: start: 20050101, end: 20051001

REACTIONS (14)
  - ANGIONEUROTIC OEDEMA [None]
  - CHEST PAIN [None]
  - DRUG INEFFECTIVE [None]
  - DYSPHAGIA [None]
  - EOSINOPHIL COUNT INCREASED [None]
  - ERUCTATION [None]
  - FATIGUE [None]
  - GASTROOESOPHAGEAL REFLUX DISEASE [None]
  - MALAISE [None]
  - ORAL PAIN [None]
  - PAIN [None]
  - PAIN IN EXTREMITY [None]
  - SHOULDER PAIN [None]
  - WEIGHT DECREASED [None]
